FAERS Safety Report 23531214 (Version 1)
Quarter: 2024Q1

REPORT INFORMATION
  Report Type: Spontaneous
  Country: US (occurrence: None)
  Receive Date: 20240215
  Receipt Date: 20240215
  Transmission Date: 20240410
  Serious: Yes (Other)
  Sender: FDA-Public Use
  Company Number: None

PATIENT
  Age: 80 Year
  Sex: Female
  Weight: 52.16 kg

DRUGS (2)
  1. GAMUNEX-C [Suspect]
     Active Substance: HUMAN IMMUNOGLOBULIN G
     Indication: Myasthenia gravis
     Dosage: OTHER FREQUENCY : DAILY X 3D Q3W;?
     Route: 042
     Dates: start: 20240213, end: 20240215
  2. GAMUNEX-C [Suspect]
     Active Substance: HUMAN IMMUNOGLOBULIN G
     Indication: Myasthenia gravis
     Dosage: OTHER FREQUENCY : DAILY X 3 DAYS Q3W;?
     Route: 042
     Dates: start: 20240213, end: 20240215

REACTIONS (2)
  - Tongue disorder [None]
  - Infusion related reaction [None]

NARRATIVE: CASE EVENT DATE: 20240215
